FAERS Safety Report 5553650-3 (Version None)
Quarter: 2007Q4

REPORT INFORMATION
  Report Type: 
  Country: None (occurrence: None)
  Receive Date: 20071213
  Receipt Date: 20071205
  Transmission Date: 20080405
  Serious: Yes (Hospitalization, Other)
  Sender: FDA-Public Use
  Company Number: PHNU2007DE04054

PATIENT
  Age: 66 Year
  Sex: Female

DRUGS (4)
  1. FEMARA [Suspect]
     Indication: BREAST CANCER
     Dosage: UNK, QD
     Route: 048
  2. BISPHOSPHONATES [Concomitant]
     Indication: OSTEOPOROSIS
  3. VITAMIN D [Concomitant]
  4. CALCIUM [Concomitant]

REACTIONS (6)
  - BLOOD ALKALINE PHOSPHATASE INCREASED [None]
  - BONE DENSITY DECREASED [None]
  - CONDITION AGGRAVATED [None]
  - LUNG NEOPLASM MALIGNANT [None]
  - LUNG OPERATION [None]
  - OSTEOPOROSIS [None]
